FAERS Safety Report 26138798 (Version 1)
Quarter: 2025Q4

REPORT INFORMATION
  Report Type: Spontaneous
  Country: EU (occurrence: EU)
  Receive Date: 20251210
  Receipt Date: 20251210
  Transmission Date: 20260118
  Serious: Yes (Hospitalization, Other)
  Sender: AUROBINDO
  Company Number: EU-AFSSAPS-CN2025001335

PATIENT
  Age: 24 Year
  Sex: Female
  Weight: 90 kg

DRUGS (8)
  1. ACETAMINOPHEN [Suspect]
     Active Substance: ACETAMINOPHEN
     Indication: Product used for unknown indication
     Dosage: 24 GRAM, 1 TOTAL
     Dates: start: 20251118, end: 20251118
  2. BROMHYDRATE DE DEXTROMETHORPHANE [Concomitant]
     Indication: Cough
     Dosage: UNK
  3. LOXAPINE [Concomitant]
     Active Substance: LOXAPINE
     Indication: Mental disorder
     Dosage: 1 DOSAGE FORM, ONCE A DAY (LE MATIN ET LE SOIR)
  4. OXAZEPAM [Concomitant]
     Active Substance: OXAZEPAM
     Indication: Borderline personality disorder
     Dosage: 1 DOSAGE FORM (SI BESOIN)
  5. VENLAFAXINE [Concomitant]
     Active Substance: VENLAFAXINE HYDROCHLORIDE
     Indication: Borderline personality disorder
     Dosage: 75 MILLIGRAM, ONCE A DAY (75 MG LE MATIN)
  6. SERTRALINE HYDROCHLORIDE [Concomitant]
     Active Substance: SERTRALINE HYDROCHLORIDE
     Indication: Borderline personality disorder
     Dosage: 50 MILLIGRAM, ONCE A DAY (1 G?LULE MATIN)
     Dates: start: 20251106
  7. SERTRALINE HYDROCHLORIDE [Concomitant]
     Active Substance: SERTRALINE HYDROCHLORIDE
     Dosage: 100 MILLIGRAM, ONCE A DAY (2 G?LULES MATIN)
     Dates: start: 20251030, end: 20251106
  8. SERTRALINE HYDROCHLORIDE [Concomitant]
     Active Substance: SERTRALINE HYDROCHLORIDE
     Dosage: 150 MILLIGRAM, ONCE A DAY (2 G?LULES MATIN, 1 G?LULE SOIR)
     Dates: start: 20251023, end: 20251030

REACTIONS (4)
  - Poisoning deliberate [Recovered/Resolved]
  - Blood alkaline phosphatase increased [Not Recovered/Not Resolved]
  - Hypertransaminasaemia [Recovering/Resolving]
  - Abdominal pain [Recovered/Resolved]

NARRATIVE: CASE EVENT DATE: 20251118
